FAERS Safety Report 23703109 (Version 1)
Quarter: 2024Q2

REPORT INFORMATION
  Report Type: Spontaneous
  Country: US (occurrence: None)
  Receive Date: 20240403
  Receipt Date: 20240403
  Transmission Date: 20240716
  Serious: No
  Sender: FDA-Public Use
  Company Number: None

PATIENT
  Sex: Female

DRUGS (11)
  1. KISQALI [Suspect]
     Active Substance: RIBOCICLIB
     Indication: Breast cancer female
     Dosage: FREQ: TAKE 400 MG BY MOUTH EVERY MORNING FOR 21 DAYS, THEN OFF FOR 7 DAYS.?
     Route: 048
     Dates: start: 20240320
  2. BUSPIRONE [Concomitant]
     Active Substance: BUSPIRONE HYDROCHLORIDE
  3. CARVEDILOL [Concomitant]
     Active Substance: CARVEDILOL
  4. CEPHALEXIN [Concomitant]
     Active Substance: CEPHALEXIN
  5. DICYCLOMINE [Concomitant]
     Active Substance: DICYCLOMINE HYDROCHLORIDE
  6. DIPHEN/ATROP [Concomitant]
  7. FERROUS SULF [Concomitant]
  8. IRON [Concomitant]
     Active Substance: IRON
  9. LETROZOLE [Concomitant]
  10. LEVOTHYROXIN [Concomitant]
  11. LISINOPRIL AND HYDROCHLOROTHIAZIDE [Concomitant]
     Active Substance: HYDROCHLOROTHIAZIDE\LISINOPRIL

REACTIONS (1)
  - Laboratory test abnormal [None]
